FAERS Safety Report 10215667 (Version 1)
Quarter: 2014Q2

REPORT INFORMATION
  Report Type: Spontaneous
  Country: FR (occurrence: FR)
  Receive Date: 20140604
  Receipt Date: 20140604
  Transmission Date: 20141212
  Serious: Yes (Other)
  Sender: FDA-Public Use
  Company Number: FR-SHIRE-FR201402620

PATIENT
  Age: 75 Year
  Sex: Male
  Weight: 70 kg

DRUGS (4)
  1. 426 (MIDODRINE) [Suspect]
     Indication: HYPOTENSION
     Dosage: 15 MG (SIX 2.5 MG TABLETS), 1X/DAY:QD
     Route: 048
     Dates: start: 20111001
  2. KARDEGIC [Concomitant]
     Indication: PRODUCT USED FOR UNKNOWN INDICATION
     Dosage: UNK, UNKNOWN
     Route: 065
     Dates: start: 20090917
  3. ALPRAZOLAM [Concomitant]
     Indication: PRODUCT USED FOR UNKNOWN INDICATION
     Dosage: UNK, UNKNOWN
     Route: 065
     Dates: start: 20111102
  4. MAGNE B6                           /00869101/ [Concomitant]
     Indication: PRODUCT USED FOR UNKNOWN INDICATION
     Dosage: UNK, UNKNOWN
     Route: 065
     Dates: start: 20140329

REACTIONS (1)
  - Constipation [Not Recovered/Not Resolved]
